FAERS Safety Report 6348583-9 (Version None)
Quarter: 2009Q3

REPORT INFORMATION
  Report Type: 
  Country: None (occurrence: None)
  Receive Date: 20090911
  Receipt Date: 20090904
  Transmission Date: 20100115
  Serious: Yes (Other)
  Sender: FDA-Public Use
  Company Number: US-JNJFOC-20090902873

PATIENT
  Age: 65 Year
  Sex: Female
  Weight: 72.58 kg

DRUGS (3)
  1. MONISTAT 7 [Suspect]
     Route: 067
  2. MONISTAT 7 [Suspect]
     Indication: FUNGAL INFECTION
     Route: 067
  3. CARDIZEM [Concomitant]

REACTIONS (3)
  - FATIGUE [None]
  - PANIC ATTACK [None]
  - TACHYARRHYTHMIA [None]
